FAERS Safety Report 9454749 (Version 2)
Quarter: 2013Q3

REPORT INFORMATION
  Report Type: Spontaneous
  Country: US (occurrence: US)
  Receive Date: 20130812
  Receipt Date: 20130902
  Transmission Date: 20140515
  Serious: Yes (Other)
  Sender: FDA-Public Use
  Company Number: US-ROCHE-1259891

PATIENT
  Age: 35 Year
  Sex: Female

DRUGS (6)
  1. XOLAIR [Suspect]
     Indication: ASTHMA
     Route: 058
     Dates: start: 20130724
  2. XOLAIR [Suspect]
     Route: 058
     Dates: start: 20130808, end: 20130808
  3. SYMBICORT [Concomitant]
     Indication: ASTHMA
     Dosage: 160/4.5
     Route: 048
     Dates: start: 20130507
  4. ALBUTEROL [Concomitant]
     Indication: ASTHMA
     Route: 048
     Dates: start: 2012
  5. AZELASTINE [Concomitant]
     Indication: RHINITIS ALLERGIC
     Route: 050
     Dates: start: 20130507
  6. FLUTICASONE [Concomitant]
     Indication: RHINITIS ALLERGIC
     Route: 050
     Dates: start: 20130507

REACTIONS (4)
  - Anaphylactic reaction [Recovered/Resolved]
  - Lip swelling [Recovered/Resolved]
  - Hypersensitivity [Recovered/Resolved]
  - Pruritus [Unknown]
